FAERS Safety Report 5327874-4 (Version None)
Quarter: 2007Q2

REPORT INFORMATION
  Report Type: 
  Country: None (occurrence: None)
  Receive Date: 20070517
  Receipt Date: 20070508
  Transmission Date: 20071010
  Serious: Yes (Other)
  Sender: FDA-Public Use
  Company Number: US-PFIZER INC-2007024649

PATIENT
  Sex: Female
  Weight: 113.4 kg

DRUGS (2)
  1. ZOLOFT [Suspect]
     Indication: DEPRESSION
  2. ETANERCEPT [Concomitant]

REACTIONS (5)
  - CRYING [None]
  - EMOTIONAL DISORDER [None]
  - PAIN [None]
  - PSORIASIS [None]
  - THERMAL BURN [None]
